FAERS Safety Report 8889367 (Version 1)
Quarter: 2012Q4

REPORT INFORMATION
  Report Type: Spontaneous
  Country: US (occurrence: None)
  Receive Date: 20121101
  Receipt Date: 20121101
  Transmission Date: 20130627
  Serious: Yes (Life-Threatening)
  Sender: FDA-Public Use
  Company Number: None

PATIENT
  Sex: Female
  Weight: 66 kg

DRUGS (2)
  1. ANGIOMAX [Suspect]
     Dosage: as noted on previous page
  2. ANGIOMAX [Suspect]

REACTIONS (1)
  - Therapeutic response decreased [None]
